FAERS Safety Report 10927208 (Version 2)
Quarter: 2015Q2

REPORT INFORMATION
  Report Type: Spontaneous
  Country: FR (occurrence: FR)
  Receive Date: 20150318
  Receipt Date: 20150402
  Transmission Date: 20150821
  Serious: Yes (Other)
  Sender: FDA-Public Use
  Company Number: FR-ROCHE-1552768

PATIENT
  Age: 56 Year
  Sex: Female

DRUGS (2)
  1. KADCYLA [Suspect]
     Active Substance: ADO-TRASTUZUMAB EMTANSINE
     Route: 065
     Dates: start: 20150326
  2. KADCYLA [Suspect]
     Active Substance: ADO-TRASTUZUMAB EMTANSINE
     Indication: HER-2 POSITIVE BREAST CANCER
     Route: 065
     Dates: start: 20150131

REACTIONS (4)
  - Tumour lysis syndrome [Recovered/Resolved]
  - Prerenal failure [Recovered/Resolved]
  - Musculoskeletal pain [Not Recovered/Not Resolved]
  - Hypercalcaemia [Recovered/Resolved]
